FAERS Safety Report 12082873 (Version 1)
Quarter: 2016Q1

REPORT INFORMATION
  Report Type: Spontaneous
  Country: US (occurrence: None)
  Receive Date: 20160216
  Receipt Date: 20160216
  Transmission Date: 20160526
  Serious: No
  Sender: FDA-Public Use
  Company Number: None

PATIENT
  Age: 69 Year
  Sex: Female
  Weight: 69.85 kg

DRUGS (9)
  1. SYNTHROID [Concomitant]
     Active Substance: LEVOTHYROXINE SODIUM
  2. PROTENEX [Concomitant]
  3. ASPIRIN. [Concomitant]
     Active Substance: ASPIRIN
  4. ALTACE [Concomitant]
     Active Substance: RAMIPRIL
  5. BAYER [Concomitant]
     Active Substance: ASPIRIN
  6. GERITAL..... [Concomitant]
  7. LEVABUTEROL 2.4 MG (XOPENEX) TEVA PHARMACEUTICAL [Suspect]
     Active Substance: LEVALBUTEROL
     Dosage: 1.25 MG, 1 VIAL, 1X, NEBULIZER BY MOUTH
     Dates: start: 20150704, end: 20150705
  8. NAPROXEN. [Concomitant]
     Active Substance: NAPROXEN
  9. TYLENOL [Concomitant]
     Active Substance: ACETAMINOPHEN

REACTIONS (3)
  - Sensory disturbance [None]
  - Hypoaesthesia [None]
  - Paraesthesia [None]
